FAERS Safety Report 12658808 (Version 2)
Quarter: 2016Q3

REPORT INFORMATION
  Report Type: Spontaneous
  Country: CH (occurrence: CH)
  Receive Date: 20160817
  Receipt Date: 20160830
  Transmission Date: 20161109
  Serious: Yes (Hospitalization)
  Sender: FDA-Public Use
  Company Number: CH-NORTHSTAR HEALTHCARE HOLDINGS-CH-2016NSR001825

PATIENT
  Age: 51 Year
  Sex: Female

DRUGS (3)
  1. CANDESARTAN [Suspect]
     Active Substance: CANDESARTAN
     Indication: HYPERURICAEMIA
     Dosage: UNK
  2. ALLOPURINOL. [Suspect]
     Active Substance: ALLOPURINOL
     Indication: HYPERURICAEMIA
     Dosage: 300 MG, QD
     Route: 048
     Dates: start: 201210, end: 20121116
  3. TORASEMID [Suspect]
     Active Substance: TORSEMIDE
     Indication: HYPERURICAEMIA
     Dosage: UNK

REACTIONS (12)
  - Rash [Recovered/Resolved]
  - Dysuria [Recovered/Resolved]
  - Vaginal ulceration [Recovered/Resolved]
  - Pyrexia [Recovered/Resolved]
  - Malaise [Recovered/Resolved]
  - Oral discomfort [Recovered/Resolved]
  - Face oedema [Recovered/Resolved]
  - Mouth ulceration [Recovered/Resolved]
  - Rash maculo-papular [Recovered/Resolved]
  - Lymphadenopathy [Recovered/Resolved]
  - Drug reaction with eosinophilia and systemic symptoms [Recovered/Resolved]
  - Lymph node pain [Recovered/Resolved]
